FAERS Safety Report 9687503 (Version 1)
Quarter: 2013Q4

REPORT INFORMATION
  Report Type: Spontaneous
  Country: US (occurrence: US)
  Receive Date: 20131114
  Receipt Date: 20131114
  Transmission Date: 20140711
  Serious: Yes (Other)
  Sender: FDA-Public Use
  Company Number: US-AMGEN-USASP2013079115

PATIENT
  Age: 82 Year
  Sex: Female

DRUGS (1)
  1. PROLIA [Suspect]
     Indication: OSTEOPOROSIS POSTMENOPAUSAL
     Dosage: UNK
     Route: 065

REACTIONS (10)
  - Transient ischaemic attack [Unknown]
  - Head injury [Unknown]
  - Fall [Unknown]
  - Cataract [Recovered/Resolved]
  - Speech disorder [Recovered/Resolved]
  - Gait disturbance [Recovering/Resolving]
  - Abdominal pain [Unknown]
  - Walking aid user [Unknown]
  - Arthralgia [Unknown]
  - Pain in extremity [Unknown]
